FAERS Safety Report 18453800 (Version 2)
Quarter: 2020Q4

REPORT INFORMATION
  Report Type: Spontaneous
  Country: US (occurrence: US)
  Receive Date: 20201102
  Receipt Date: 20201130
  Transmission Date: 20210114
  Serious: Yes (Hospitalization, Other)
  Sender: FDA-Public Use
  Company Number: US-PURDUE-USA-2020-0174078

PATIENT
  Sex: Female

DRUGS (2)
  1. OXYCONTIN [Suspect]
     Active Substance: OXYCODONE HYDROCHLORIDE
     Indication: PRODUCT USED FOR UNKNOWN INDICATION
     Dosage: UNK
     Route: 048
     Dates: start: 2000
  2. HYDROCODONE BITARTRATE AND ACETAMINOPHEN [Suspect]
     Active Substance: ACETAMINOPHEN\HYDROCODONE BITARTRATE
     Indication: PRODUCT USED FOR UNKNOWN INDICATION
     Dosage: UNKNOWN
     Route: 048

REACTIONS (16)
  - Overdose [Unknown]
  - Rheumatoid arthritis [Unknown]
  - Amnesia [Unknown]
  - Withdrawal syndrome [Unknown]
  - Vertigo [Unknown]
  - Drug dependence [Unknown]
  - Nausea [Unknown]
  - Anxiety [Unknown]
  - Panic disorder [Unknown]
  - Depression [Unknown]
  - Drug abuse [Unknown]
  - Plantar fasciitis [Unknown]
  - Gastrointestinal disorder [Unknown]
  - Pain [Unknown]
  - Fatigue [Unknown]
  - Fibromyalgia [Unknown]
